FAERS Safety Report 23056609 (Version 1)
Quarter: 2023Q4

REPORT INFORMATION
  Report Type: Spontaneous
  Country: US (occurrence: US)
  Receive Date: 20231011
  Receipt Date: 20231011
  Transmission Date: 20240109
  Serious: No
  Sender: FDA-Public Use
  Company Number: US-Blueprint Medicines Corporation-1540

PATIENT
  Sex: Female

DRUGS (1)
  1. AYVAKIT [Suspect]
     Active Substance: AVAPRITINIB
     Indication: Haematopoietic neoplasm
     Route: 065
     Dates: start: 20230913

REACTIONS (5)
  - Sinus disorder [Unknown]
  - Headache [Unknown]
  - Arthropod sting [Unknown]
  - Allergy to arthropod sting [Unknown]
  - Swelling [Unknown]
